FAERS Safety Report 10461557 (Version 1)
Quarter: 2014Q3

REPORT INFORMATION
  Report Type: Spontaneous
  Country: SE (occurrence: SE)
  Receive Date: 20140918
  Receipt Date: 20140918
  Transmission Date: 20150326
  Serious: Yes (Other)
  Sender: FDA-Public Use
  Company Number: SE-SA-2014SA126328

PATIENT
  Age: 58 Year
  Sex: Female

DRUGS (1)
  1. ARAVA [Suspect]
     Active Substance: LEFLUNOMIDE
     Indication: RHEUMATOID ARTHRITIS
     Dosage: FILMDRAGERAD TABLETT
     Route: 065
     Dates: start: 20131203, end: 20140528

REACTIONS (6)
  - Dry skin [Recovered/Resolved]
  - Toxic skin eruption [Recovered/Resolved]
  - Pruritus [Recovered/Resolved]
  - Rash maculo-papular [Recovered/Resolved]
  - Eczema [Recovered/Resolved]
  - Urticaria [Recovered/Resolved]

NARRATIVE: CASE EVENT DATE: 20140521
